FAERS Safety Report 5095084-4 (Version None)
Quarter: 2006Q3

REPORT INFORMATION
  Report Type: 
  Country: None (occurrence: None)
  Receive Date: 20060901
  Receipt Date: 20060820
  Transmission Date: 20061208
  Serious: Yes (Hospitalization, Other)
  Sender: FDA-Public Use
  Company Number: US-AVENTIS-200617134US

PATIENT
  Sex: Male
  Weight: 106 kg

DRUGS (12)
  1. AMARYL [Suspect]
     Indication: DIABETES MELLITUS
  2. PREDNISONE TAB [Suspect]
  3. PREDNISONE TAB [Suspect]
  4. PAMELOR [Suspect]
     Dosage: DOSE: UNK
  5. DECADRON [Suspect]
  6. COUMADIN [Suspect]
  7. RADIATION [Suspect]
     Dosage: DOSE: UNK
  8. TIAZAC [Concomitant]
  9. NEXIUM [Concomitant]
  10. BACTRIM [Concomitant]
  11. REQUIP [Concomitant]
     Indication: RESTLESS LEGS SYNDROME
     Dosage: DOSE: UNK
  12. ALL OTHER THERAPEUTIC PRODUCTS [Concomitant]
     Dosage: DOSE: UNK

REACTIONS (14)
  - BLOOD POTASSIUM INCREASED [None]
  - BLOOD UREA INCREASED [None]
  - BLOOD URINE PRESENT [None]
  - CONFUSIONAL STATE [None]
  - DECREASED APPETITE [None]
  - FALL [None]
  - GASTROINTESTINAL DISORDER [None]
  - HYPERGLYCAEMIA [None]
  - LARGE INTESTINE PERFORATION [None]
  - MALAISE [None]
  - PROSTATE CANCER METASTATIC [None]
  - RENAL FAILURE [None]
  - URINARY TRACT OBSTRUCTION [None]
  - WEIGHT DECREASED [None]
